FAERS Safety Report 21371557 (Version 8)
Quarter: 2024Q2

REPORT INFORMATION
  Report Type: Report from Study
  Country: CA (occurrence: CA)
  Receive Date: 20220923
  Receipt Date: 20240405
  Transmission Date: 20240716
  Serious: Yes (Hospitalization, Other)
  Sender: FDA-Public Use
  Company Number: CA-BAUSCH-BL-2019-064523

PATIENT
  Age: 49 Year
  Sex: Male

DRUGS (12)
  1. SILIQ [Suspect]
     Active Substance: BRODALUMAB
     Indication: Psoriasis
     Dosage: 210 MG/1.5 ML, FOR WEEKS 0,1,2
     Route: 058
     Dates: start: 20191128, end: 201912
  2. SILIQ [Suspect]
     Active Substance: BRODALUMAB
     Indication: Psoriasis
     Dosage: 210 MG/1.5 ML, FOR WEEKS 0,1,2
     Route: 058
     Dates: start: 20191128, end: 201912
  3. SILIQ [Suspect]
     Active Substance: BRODALUMAB
     Indication: Psoriasis
     Dosage: 210 MG/1.5 ML
     Route: 058
     Dates: start: 20210226, end: 2021
  4. SILIQ [Suspect]
     Active Substance: BRODALUMAB
     Indication: Psoriasis
     Dosage: 210 MG/1.5 ML
     Route: 058
     Dates: start: 20210226, end: 2021
  5. SILIQ [Suspect]
     Active Substance: BRODALUMAB
     Indication: Psoriasis
     Dosage: 210 MG/1.5 ML, EVERY 2 WEEKS
     Route: 058
     Dates: start: 201912, end: 20210219
  6. SILIQ [Suspect]
     Active Substance: BRODALUMAB
     Indication: Psoriasis
     Dosage: 210 MG/1.5 ML, EVERY 2 WEEKS
     Route: 058
     Dates: start: 201912, end: 20210219
  7. SILIQ [Suspect]
     Active Substance: BRODALUMAB
     Indication: Psoriasis
     Dosage: 210 MG/1.5 ML, EVERY 2 WEEKS, ON HOLD
     Route: 058
     Dates: start: 2021, end: 2022
  8. SILIQ [Suspect]
     Active Substance: BRODALUMAB
     Indication: Psoriasis
     Dosage: 210 MG/1.5 ML, EVERY 2 WEEKS, ON HOLD
     Route: 058
     Dates: start: 2021, end: 2022
  9. METHOTREXATE [Concomitant]
     Active Substance: METHOTREXATE
     Indication: Product used for unknown indication
     Dosage: WEANING
  10. PANTOPRAZOLE [Concomitant]
     Active Substance: PANTOPRAZOLE
     Indication: Product used for unknown indication
  11. PANTOPRAZOLE SODIUM [Concomitant]
     Active Substance: PANTOPRAZOLE SODIUM
     Indication: Product used for unknown indication
  12. TACLONEX [Suspect]
     Active Substance: BETAMETHASONE DIPROPIONATE\CALCIPOTRIENE\CALCIPOTRIENE HYDRATE
     Indication: Product used for unknown indication
     Route: 058

REACTIONS (12)
  - Illness [Not Recovered/Not Resolved]
  - Skin atrophy [Recovered/Resolved]
  - Injection site mass [Recovered/Resolved]
  - Therapeutic response unexpected [Unknown]
  - Skin abrasion [Recovered/Resolved]
  - Skin atrophy [Recovered/Resolved]
  - Gallbladder disorder [Unknown]
  - Psoriasis [Not Recovered/Not Resolved]
  - Patient dissatisfaction with treatment [Unknown]
  - Intentional product use issue [Unknown]
  - Pancreatic carcinoma [Unknown]
  - Skin abrasion [Recovered/Resolved]

NARRATIVE: CASE EVENT DATE: 20190101
